FAERS Safety Report 10701146 (Version 4)
Quarter: 2015Q3

REPORT INFORMATION
  Report Type: Report from Study
  Country: US (occurrence: US)
  Receive Date: 20150109
  Receipt Date: 20150710
  Transmission Date: 20151125
  Serious: Yes (Death, Hospitalization)
  Sender: FDA-Public Use
  Company Number: US-PFIZER INC-2014064976

PATIENT
  Age: 49 Year
  Sex: Male

DRUGS (10)
  1. BEVACIZUMAB [Suspect]
     Active Substance: BEVACIZUMAB
     Indication: COLON CANCER
     Dosage: 5 MG/KG, CYCLIC (EVERY 2 WEEKS)
     Route: 042
     Dates: start: 20140109, end: 20140109
  2. LEUCOVORIN. [Suspect]
     Active Substance: LEUCOVORIN
     Dosage: 200 MG/M2, CYCLIC (1 IN 2 WK)
     Route: 042
     Dates: start: 20140129, end: 20141022
  3. IRINOTECAN HCL [Suspect]
     Active Substance: IRINOTECAN HYDROCHLORIDE
     Indication: COLON CANCER
     Dosage: 165 MG/M2, CYCLIC (1 IN 2 WEEKS)
     Route: 042
     Dates: start: 20140109, end: 20140109
  4. 5-FU [Suspect]
     Active Substance: FLUOROURACIL
     Dosage: 2400 MG/M2, CYCLIC (1 IN 2 WK)
     Route: 042
     Dates: start: 20140129, end: 20141022
  5. OXALIPLATIN. [Suspect]
     Active Substance: OXALIPLATIN
     Dosage: 65 MG/M2, CYCLIC (1 IN 2 WK)
     Route: 042
     Dates: start: 20140129, end: 20141022
  6. BEVACIZUMAB [Suspect]
     Active Substance: BEVACIZUMAB
     Dosage: 5 MG/KG, CYCLIC (1 IN 2 WEEKS)
     Route: 042
     Dates: start: 20140129, end: 20141022
  7. IRINOTECAN HCL [Suspect]
     Active Substance: IRINOTECAN HYDROCHLORIDE
     Dosage: 120 MG/M2, CYCLIC (1 IN 2 WK)
     Route: 042
     Dates: start: 20140129, end: 20141022
  8. 5-FU [Suspect]
     Active Substance: FLUOROURACIL
     Indication: COLON CANCER
     Dosage: 3200 MG/M2, INFUSION, CYCLIC (EVERY TWO WEEKS)
     Route: 042
     Dates: start: 20140109, end: 20140109
  9. OXALIPLATIN. [Suspect]
     Active Substance: OXALIPLATIN
     Indication: COLON CANCER
     Dosage: 85 MG/M2, CYCLIC (EVERY TWO WEEKS)
     Route: 042
     Dates: start: 20140109, end: 20140109
  10. LEUCOVORIN. [Suspect]
     Active Substance: LEUCOVORIN
     Indication: COLON CANCER
     Dosage: 200 MG/M2, CYCLIC (EVERY TWO WEEKS))
     Route: 042
     Dates: start: 20140109, end: 20140109

REACTIONS (3)
  - Febrile neutropenia [Recovered/Resolved]
  - Constipation [Recovered/Resolved]
  - Death [Fatal]

NARRATIVE: CASE EVENT DATE: 20140118
